FAERS Safety Report 5723672-8 (Version None)
Quarter: 2008Q2

REPORT INFORMATION
  Report Type: 
  Country: None (occurrence: None)
  Receive Date: 20080430
  Receipt Date: 20080418
  Transmission Date: 20081010
  Serious: Yes (Hospitalization)
  Sender: FDA-Public Use
  Company Number: DE-ROCHE-532121

PATIENT
  Sex: Female
  Weight: 49.6 kg

DRUGS (22)
  1. METHOXY POLYETHYLENE GLYCOL-EPOETIN BETA [Suspect]
     Dosage: FORM REPORTED AS PRE FILLED SYRINGE.
     Route: 042
     Dates: start: 20070509, end: 20070606
  2. METHOXY POLYETHYLENE GLYCOL-EPOETIN BETA [Suspect]
     Dosage: FORM REPORTED AS PFS
     Route: 042
     Dates: start: 20070704
  3. ERYPO [Suspect]
     Dosage: DRUG REPORTED AS ERYPO FS.
     Route: 065
     Dates: start: 20061221, end: 20070504
  4. ITRACONAZOLE [Concomitant]
     Dates: start: 19960101
  5. 1 CONCOMITANT DRUG [Concomitant]
     Dosage: DRUG NAME REPORTED AS  AS3 100 1A PHARMS, DOSEFORM=TBL, 1 IN THE MORNING, NOT AT DIALYSIS, NOT AT H+
  6. VITARENAL [Concomitant]
     Dates: start: 20051213
  7. VITARENAL [Concomitant]
     Dates: start: 20051213
  8. RENAGEL [Concomitant]
     Dates: start: 20061218
  9. TELFAST [Concomitant]
     Dates: start: 20051213
  10. DICLOFENAC SODIUM [Concomitant]
     Dosage: DRUG NAME REPORTED AS DICLOFENAC 50 HEUMANN, DOSEFORM = TBLM, ON DEMAND
  11. OMEPRAZOLE [Concomitant]
     Dates: start: 20051213
  12. SPIRIVA [Concomitant]
     Dates: start: 20060207
  13. BICA NORM [Concomitant]
     Dates: start: 20051116
  14. NITROLINGUAL [Concomitant]
     Dosage: DRUG NAME REPORTED AS NITROLINGUAL N SPRAY, DOSEFORM= DSPR, ON DEMAND
     Dates: start: 20051213
  15. CALCIUMACETAT [Concomitant]
     Dates: start: 20010101
  16. BIOTIN [Concomitant]
     Dates: start: 20020101
  17. FERRLECIT [Concomitant]
     Dates: start: 20040518
  18. DEKRISTOL [Concomitant]
     Dosage: DRUG NAME REPORTED AS DEKRISTOL 20000I.E. JENAPHARM, DOSEFORM=KPS, 20000,000 EVERY FOUR WEEKS AT DI+
  19. HEPARIN [Concomitant]
     Dosage: UNIT REPORTED AS IE.
     Dates: start: 20071018, end: 20071018
  20. ASPIRIN [Concomitant]
     Dates: start: 20070720
  21. SYMBICORT [Concomitant]
     Dates: start: 20060207
  22. SYMBICORT [Concomitant]
     Dates: start: 20060207

REACTIONS (3)
  - ACUTE CORONARY SYNDROME [None]
  - ARTERIOVENOUS FISTULA ANEURYSM [None]
  - ARTERIOVENOUS FISTULA SITE COMPLICATION [None]
